FAERS Safety Report 19611538 (Version 4)
Quarter: 2022Q2

REPORT INFORMATION
  Report Type: Report from Study
  Country: JP (occurrence: JP)
  Receive Date: 20210727
  Receipt Date: 20220412
  Transmission Date: 20220721
  Serious: Yes (Hospitalization, Other)
  Sender: FDA-Public Use
  Company Number: JP-ABBVIE-21K-087-4010230-00

PATIENT
  Age: 30 Year
  Sex: Male
  Weight: 68.4 kg

DRUGS (2)
  1. HUMIRA [Suspect]
     Active Substance: ADALIMUMAB
     Indication: Crohn^s disease
     Route: 058
     Dates: start: 20180519, end: 20180922
  2. HUMIRA [Suspect]
     Active Substance: ADALIMUMAB
     Route: 058
     Dates: start: 20200125

REACTIONS (5)
  - Pyoderma gangrenosum [Recovering/Resolving]
  - Squamous cell carcinoma of skin [Recovering/Resolving]
  - Renal disorder [Unknown]
  - C-reactive protein increased [Recovering/Resolving]
  - Dehydration [Unknown]

NARRATIVE: CASE EVENT DATE: 20190101
